FAERS Safety Report 19303787 (Version 6)
Quarter: 2021Q3

REPORT INFORMATION
  Report Type: Report from Study
  Country: US (occurrence: US)
  Receive Date: 20210525
  Receipt Date: 20210817
  Transmission Date: 20211014
  Serious: Yes (Death, Hospitalization)
  Sender: FDA-Public Use
  Company Number: US-JNJFOC-20210522772

PATIENT
  Age: 51 Year
  Sex: Female
  Weight: 49.5 kg

DRUGS (5)
  1. EPOPROSTENOL SODIUM. [Suspect]
     Active Substance: EPOPROSTENOL SODIUM
     Route: 042
  2. AMBRISENTAN [Concomitant]
     Active Substance: AMBRISENTAN
  3. EPOPROSTENOL SODIUM. [Suspect]
     Active Substance: EPOPROSTENOL SODIUM
     Indication: PULMONARY ARTERIAL HYPERTENSION
     Route: 042
  4. EPOPROSTENOL SODIUM. [Suspect]
     Active Substance: EPOPROSTENOL SODIUM
     Route: 042
  5. TADALAFIL. [Concomitant]
     Active Substance: TADALAFIL

REACTIONS (8)
  - Cardiac arrest [Fatal]
  - Depression [Unknown]
  - Asthenia [Unknown]
  - Malaise [Unknown]
  - Diarrhoea [Unknown]
  - Dyspnoea [Unknown]
  - Vomiting [Unknown]
  - Right ventricular failure [Unknown]

NARRATIVE: CASE EVENT DATE: 202105
